FAERS Safety Report 15614723 (Version 5)
Quarter: 2019Q3

REPORT INFORMATION
  Report Type: Spontaneous
  Country: JP (occurrence: JP)
  Receive Date: 20181113
  Receipt Date: 20190908
  Transmission Date: 20191004
  Serious: Yes (Hospitalization, Other)
  Sender: FDA-Public Use
  Company Number: JP-INCYTE CORPORATION-2018IN011520

PATIENT

DRUGS (9)
  1. JAKAVI [Suspect]
     Active Substance: RUXOLITINIB
     Dosage: 20 MG, UNK
     Dates: start: 20180727
  2. JAKAVI [Suspect]
     Active Substance: RUXOLITINIB
     Indication: MYELOFIBROSIS
     Dosage: 5 MG, BID
     Route: 048
     Dates: start: 20150320
  3. JAKAVI [Suspect]
     Active Substance: RUXOLITINIB
     Dosage: 10 MG, BID
     Route: 048
     Dates: end: 20160512
  4. JAKAVI [Suspect]
     Active Substance: RUXOLITINIB
     Dosage: 20 MG, BID
     Dates: start: 20160902, end: 20180720
  5. FEBURIC [Concomitant]
     Active Substance: FEBUXOSTAT
     Indication: MYELOFIBROSIS
     Dosage: 20 MG, UNK
     Route: 048
  6. HYDREA [Concomitant]
     Active Substance: HYDROXYUREA
     Dosage: UNK
     Route: 048
  7. HYDREA [Concomitant]
     Active Substance: HYDROXYUREA
     Indication: MYELOFIBROSIS
     Dosage: 1000 MG, UNK
     Route: 048
     Dates: end: 20150319
  8. JAKAVI [Suspect]
     Active Substance: RUXOLITINIB
     Dosage: 15 MG, BID
     Dates: start: 20160513, end: 20160901
  9. HYDREA [Concomitant]
     Active Substance: HYDROXYUREA
     Dosage: 1000 MG, UNK
     Route: 048

REACTIONS (3)
  - Withdrawal syndrome [Recovering/Resolving]
  - Herpes zoster [Recovering/Resolving]
  - Pneumonia [Recovering/Resolving]

NARRATIVE: CASE EVENT DATE: 20180712
